FAERS Safety Report 15895825 (Version 2)
Quarter: 2019Q2

REPORT INFORMATION
  Report Type: Spontaneous
  Country: US (occurrence: US)
  Receive Date: 20190131
  Receipt Date: 20190430
  Transmission Date: 20190711
  Serious: No
  Sender: FDA-Public Use
  Company Number: US-TEVA-2019-US-996874

PATIENT
  Sex: Female

DRUGS (2)
  1. VITAMIN-D [Concomitant]
     Active Substance: VITAMIN D NOS
  2. COPAXONE [Suspect]
     Active Substance: GLATIRAMER ACETATE
     Dosage: FORM STRENGTH:UNKNOWN
     Route: 065
     Dates: start: 200310, end: 2010

REACTIONS (1)
  - Alopecia [Unknown]
